FAERS Safety Report 8315123-4 (Version None)
Quarter: 2012Q2

REPORT INFORMATION
  Report Type: 
  Country: None (occurrence: None)
  Receive Date: 20120426
  Receipt Date: 20120419
  Transmission Date: 20120825
  Serious: Yes (Death, Hospitalization)
  Sender: FDA-Public Use
  Company Number: US-GLAXOSMITHKLINE-A0787911A

PATIENT
  Age: 70 Year
  Sex: Female
  Weight: 65.9 kg

DRUGS (1)
  1. AVANDIA [Suspect]
     Indication: TYPE 2 DIABETES MELLITUS
     Dosage: 4MG PER DAY
     Route: 048
     Dates: start: 20021201, end: 20070720

REACTIONS (6)
  - PNEUMONIA [None]
  - TRANSIENT ISCHAEMIC ATTACK [None]
  - DECUBITUS ULCER [None]
  - SEPSIS [None]
  - ANAEMIA [None]
  - MYOCARDIAL INFARCTION [None]
